FAERS Safety Report 18907780 (Version 2)
Quarter: 2021Q2

REPORT INFORMATION
  Report Type: Report from Study
  Country: BR (occurrence: BR)
  Receive Date: 20210218
  Receipt Date: 20210518
  Transmission Date: 20210717
  Serious: Yes (Other)
  Sender: FDA-Public Use
  Company Number: BR-AMGEN-BRASL2021024452

PATIENT
  Age: 60 Year
  Sex: Male

DRUGS (2)
  1. VECTIBIX [Suspect]
     Active Substance: PANITUMUMAB
     Indication: GASTROINTESTINAL CARCINOMA
     Dosage: EVERY 15 DAYS
     Route: 065
     Dates: end: 2021
  2. VECTIBIX [Suspect]
     Active Substance: PANITUMUMAB
     Indication: HEPATIC NEOPLASM

REACTIONS (6)
  - Sleep apnoea syndrome [Unknown]
  - Weight decreased [Unknown]
  - Dry skin [Not Recovered/Not Resolved]
  - Skin burning sensation [Unknown]
  - Immunosuppression [Unknown]
  - Skin reaction [Unknown]

NARRATIVE: CASE EVENT DATE: 2021
